FAERS Safety Report 8326516-3 (Version None)
Quarter: 2012Q2

REPORT INFORMATION
  Report Type: 
  Country: None (occurrence: None)
  Receive Date: 20120501
  Receipt Date: 20110525
  Transmission Date: 20120825
  Serious: No
  Sender: FDA-Public Use
  Company Number: US-SANOFI-AVENTIS-2011SA036219

PATIENT
  Age: 40 Year
  Sex: Female
  Weight: 100 kg

DRUGS (3)
  1. APIDRA [Suspect]
     Dosage: DOSAGE: 18-20 UNITS. 32 UNIT SLIDING SCALE DOSE:32 UNIT(S)
     Route: 058
     Dates: start: 20110525, end: 20110526
  2. HUMALOG [Concomitant]
     Dates: end: 20110525
  3. LANTUS [Concomitant]
     Dosage: DOSE:3 UNIT(S)
     Route: 058

REACTIONS (7)
  - URTICARIA [None]
  - DIZZINESS [None]
  - ERYTHEMA [None]
  - SWELLING FACE [None]
  - OEDEMA PERIPHERAL [None]
  - RASH [None]
  - AURICULAR SWELLING [None]
